FAERS Safety Report 6043678-1 (Version None)
Quarter: 2009Q1

REPORT INFORMATION
  Report Type: 
  Country: None (occurrence: None)
  Receive Date: 20090115
  Receipt Date: 20090115
  Transmission Date: 20090719
  Serious: Yes (Hospitalization)
  Sender: FDA-Public Use
  Company Number: None

PATIENT
  Age: 86 Year
  Sex: Female
  Weight: 46 kg

DRUGS (2)
  1. REGLAN [Suspect]
     Indication: GASTROOESOPHAGEAL REFLUX DISEASE
     Dosage: 10 MG FOUR TIMES A DAY PO
     Route: 048
  2. REGLAN [Suspect]
     Indication: REGURGITATION
     Dosage: 10 MG FOUR TIMES A DAY PO
     Route: 048

REACTIONS (2)
  - ABASIA [None]
  - TOXIC ENCEPHALOPATHY [None]
